FAERS Safety Report 7673357-6 (Version None)
Quarter: 2011Q3

REPORT INFORMATION
  Report Type: 
  Country: None (occurrence: None)
  Receive Date: 20110810
  Receipt Date: 20110729
  Transmission Date: 20111222
  Serious: No
  Sender: FDA-Public Use
  Company Number: US-JNJFOC-20110801163

PATIENT
  Sex: Female

DRUGS (8)
  1. OXYCODONE HCL [Concomitant]
     Indication: PAIN
     Route: 048
  2. DURAGESIC-100 [Suspect]
     Indication: NERVE INJURY
     Route: 062
     Dates: start: 20100101
  3. DURAGESIC-100 [Suspect]
     Route: 062
     Dates: start: 20100101
  4. METHOTREXATE [Concomitant]
     Indication: RHEUMATOID ARTHRITIS
     Route: 030
  5. DURAGESIC-100 [Suspect]
     Route: 062
     Dates: start: 20100101
  6. DURAGESIC-100 [Suspect]
     Indication: RHEUMATOID ARTHRITIS
     Route: 062
     Dates: start: 20100101
  7. PREDNISONE [Concomitant]
     Indication: RHEUMATOID ARTHRITIS
     Route: 048
  8. FOLIC ACID [Concomitant]
     Indication: RHEUMATOID ARTHRITIS
     Route: 048

REACTIONS (2)
  - DRUG ADMINISTRATION ERROR [None]
  - PRODUCT QUALITY ISSUE [None]
